FAERS Safety Report 8441850 (Version 3)
Quarter: 2013Q2

REPORT INFORMATION
  Report Type: Report from Study
  Country: DE (occurrence: DE)
  Receive Date: 20120305
  Receipt Date: 20130627
  Transmission Date: 20140414
  Serious: Yes (Other)
  Sender: FDA-Public Use
  Company Number: PHHY2011DE100996

PATIENT
  Sex: Male
  Weight: 93 kg

DRUGS (1)
  1. FTY 720 [Suspect]
     Indication: MULTIPLE SCLEROSIS
     Dosage: 0.5 MG, QD
     Route: 048
     Dates: start: 20101116

REACTIONS (3)
  - Arteriosclerosis coronary artery [Unknown]
  - Hypertensive heart disease [Unknown]
  - Hypertension [Recovered/Resolved]
